FAERS Safety Report 4523113-2 (Version None)
Quarter: 2004Q4

REPORT INFORMATION
  Report Type: 
  Country: None (occurrence: None)
  Receive Date: 20041208
  Receipt Date: 20041125
  Transmission Date: 20050328
  Serious: Yes (Other)
  Sender: FDA-Public Use
  Company Number: 2004091025

PATIENT
  Age: 50 Year
  Sex: Female

DRUGS (2)
  1. BEXTRA [Suspect]
     Indication: INFLAMMATION LOCALISED
     Dosage: 20 MG (W0 MG, 1 IN 1 D),
     Route: 048
     Dates: start: 20041027, end: 20041027
  2. THYROID HORMONES          (THYROID HORMONES) [Concomitant]

REACTIONS (5)
  - BLOOD PRESSURE DECREASED [None]
  - DRUG EFFECT DECREASED [None]
  - DRUG HYPERSENSITIVITY [None]
  - SYNCOPE [None]
  - TREMOR [None]
